FAERS Safety Report 6321656-2 (Version None)
Quarter: 2009Q3

REPORT INFORMATION
  Report Type: 
  Country: None (occurrence: None)
  Receive Date: 20090821
  Receipt Date: 20090821
  Transmission Date: 20100115
  Serious: Yes (Other)
  Sender: FDA-Public Use
  Company Number: None

PATIENT
  Age: 66 Year
  Sex: Female
  Weight: 69.8539 kg

DRUGS (1)
  1. CEPHALEXIN [Suspect]

REACTIONS (7)
  - BLISTER [None]
  - NERVOUS SYSTEM DISORDER [None]
  - OEDEMA PERIPHERAL [None]
  - PRURITUS [None]
  - SKIN DISORDER [None]
  - SKIN EXFOLIATION [None]
  - URTICARIA [None]
